FAERS Safety Report 19714762 (Version 1)
Quarter: 2021Q3

REPORT INFORMATION
  Report Type: Spontaneous
  Country: US (occurrence: US)
  Receive Date: 20210818
  Receipt Date: 20210818
  Transmission Date: 20211014
  Serious: Yes (Hospitalization, Other)
  Sender: FDA-Public Use
  Company Number: US-CELLTRION INC.-2021US010986

PATIENT

DRUGS (2)
  1. INFLIXIMAB (UNKNOWN) [Suspect]
     Active Substance: INFLIXIMAB
     Dosage: 10 MG/KG, Q4WEEKS
  2. INFLIXIMAB (UNKNOWN) [Suspect]
     Active Substance: INFLIXIMAB
     Indication: CROHN^S DISEASE
     Dosage: 5 MG/KG, Q4WEEKS

REACTIONS (6)
  - Pericarditis [Recovered/Resolved]
  - Pneumonia mycoplasmal [Recovered/Resolved]
  - Serositis [Recovered/Resolved]
  - Lupus-like syndrome [Recovered/Resolved]
  - Pleural effusion [Recovered/Resolved]
  - Off label use [Unknown]
